FAERS Safety Report 4323248-3 (Version None)
Quarter: 2004Q1

REPORT INFORMATION
  Report Type: 
  Country: None (occurrence: None)
  Receive Date: 20040322
  Receipt Date: 20040309
  Transmission Date: 20041129
  Serious: Yes (Hospitalization, Other)
  Sender: FDA-Public Use
  Company Number: US068426

PATIENT
  Age: 58 Year
  Sex: Female

DRUGS (11)
  1. ENBREL [Suspect]
     Indication: DRUG USE FOR UNKNOWN INDICATION
     Dates: start: 20040129, end: 20040130
  2. TRAMADOL HCL [Concomitant]
  3. SULFASALAZINE [Concomitant]
  4. RANITIDINE [Concomitant]
  5. SENNA [Concomitant]
  6. LACTULOSE [Concomitant]
  7. PREDNISOLONE [Concomitant]
  8. OXYBUTYNIN [Concomitant]
  9. AMILORIDE W/HYDROCHLORTHIAZIDE [Concomitant]
  10. CALCIUM CARBONATE [Concomitant]
  11. COLECALCIFEROL [Concomitant]

REACTIONS (12)
  - ABDOMINAL PAIN [None]
  - ARTHRALGIA [None]
  - BODY TEMPERATURE INCREASED [None]
  - C-REACTIVE PROTEIN INCREASED [None]
  - CONFUSIONAL STATE [None]
  - CREPITATIONS [None]
  - HALLUCINATION [None]
  - MUSCULOSKELETAL STIFFNESS [None]
  - PRODUCTIVE COUGH [None]
  - RASH ERYTHEMATOUS [None]
  - SPUTUM DISCOLOURED [None]
  - WHITE BLOOD CELL COUNT INCREASED [None]
